FAERS Safety Report 15430821 (Version 3)
Quarter: 2018Q4

REPORT INFORMATION
  Report Type: Report from Study
  Country: None (occurrence: US)
  Receive Date: 20180926
  Receipt Date: 20181115
  Transmission Date: 20190204
  Serious: Yes (Hospitalization, Other)
  Sender: FDA-Public Use
  Company Number: US-ABBVIE-18K-163-2497790-00

PATIENT
  Age: 78 Year
  Sex: Female
  Weight: 41.31 kg

DRUGS (8)
  1. HUMIRA [Suspect]
     Active Substance: ADALIMUMAB
     Indication: CROHN^S DISEASE
     Route: 058
     Dates: start: 2015
  2. ATORVASTATIN [Concomitant]
     Active Substance: ATORVASTATIN
     Indication: BLOOD CHOLESTEROL INCREASED
  3. BIOTIN [Concomitant]
     Active Substance: BIOTIN
     Indication: ALOPECIA
  4. ESCITALOPRAM [Concomitant]
     Active Substance: ESCITALOPRAM OXALATE
     Indication: DEPRESSION
  5. CLONAZEPAM. [Concomitant]
     Active Substance: CLONAZEPAM
     Indication: ANXIETY
  6. DILTIAZEM. [Concomitant]
     Active Substance: DILTIAZEM
     Indication: HYPERTENSION
  7. PANTOPRAZOLE [Concomitant]
     Active Substance: PANTOPRAZOLE
     Indication: GASTROOESOPHAGEAL REFLUX DISEASE
  8. ANOROL ELLIPTA [Concomitant]
     Indication: CHRONIC OBSTRUCTIVE PULMONARY DISEASE

REACTIONS (18)
  - Blood potassium increased [Recovered/Resolved]
  - Abdominal pain upper [Unknown]
  - Lipase increased [Recovering/Resolving]
  - Sciatica [Recovered/Resolved]
  - Blood pressure abnormal [Recovered/Resolved]
  - Abdominal pain [Recovered/Resolved]
  - Cholecystectomy [Unknown]
  - Constipation [Recovered/Resolved]
  - Amylase increased [Recovering/Resolving]
  - Vomiting [Recovered/Resolved]
  - Ill-defined disorder [Unknown]
  - Frequent bowel movements [Unknown]
  - Pancreatitis acute [Recovered/Resolved]
  - Nervous system disorder [Recovered/Resolved]
  - Cholelithiasis [Recovered/Resolved]
  - Nausea [Recovered/Resolved]
  - Malaise [Unknown]
  - Weight decreased [Recovered/Resolved]

NARRATIVE: CASE EVENT DATE: 2018
